FAERS Safety Report 5110093-4 (Version None)
Quarter: 2006Q3

REPORT INFORMATION
  Report Type: 
  Country: None (occurrence: None)
  Receive Date: 20060919
  Receipt Date: 20060919
  Transmission Date: 20061208
  Serious: No
  Sender: FDA-Public Use
  Company Number: None

PATIENT
  Age: 9 Year
  Sex: Male
  Weight: 22.6799 kg

DRUGS (1)
  1. RISPERDAL [Suspect]
     Indication: TIC
     Dosage: .25 TWICE A DAY PO
     Route: 048
     Dates: start: 20060901, end: 20060912

REACTIONS (3)
  - FACIAL SPASM [None]
  - ODYNOPHAGIA [None]
  - TONGUE DISORDER [None]
